FAERS Safety Report 9929832 (Version 1)
Quarter: 2014Q1

REPORT INFORMATION
  Report Type: Spontaneous
  Country: US (occurrence: US)
  Receive Date: 20140227
  Receipt Date: 20140227
  Transmission Date: 20141002
  Serious: No
  Sender: FDA-Public Use
  Company Number: US-B.I. PHARMACEUTICALS,INC./RIDGEFIELD-2014-BI-08544BP

PATIENT
  Age: 79 Year
  Sex: Female

DRUGS (8)
  1. COMBIVENT [Suspect]
     Indication: CHRONIC OBSTRUCTIVE PULMONARY DISEASE
     Dosage: STRENGTH: 20 MCG / 100 MCG; DAILY DOSE: 80 MCG/ 400 MCG
     Route: 055
     Dates: start: 201401
  2. NORVASC [Concomitant]
     Route: 048
  3. MICARDIS HCT [Concomitant]
     Route: 048
  4. NEXIUIM [Concomitant]
     Route: 048
  5. ATIVAN [Concomitant]
     Route: 048
  6. VICODIN [Concomitant]
     Route: 048
  7. PROBIOTIC [Concomitant]
     Route: 048
  8. LIBRAX [Concomitant]
     Route: 048

REACTIONS (1)
  - Choking [Not Recovered/Not Resolved]
